FAERS Safety Report 7108802-8 (Version None)
Quarter: 2010Q4

REPORT INFORMATION
  Report Type: 
  Country: None (occurrence: None)
  Receive Date: 20101117
  Receipt Date: 20101111
  Transmission Date: 20110411
  Serious: Yes (Hospitalization)
  Sender: FDA-Public Use
  Company Number: IT-SANOFI-AVENTIS-2010SA068479

PATIENT
  Age: 73 Year
  Sex: Male

DRUGS (7)
  1. LASIX [Suspect]
     Indication: HYPERTENSION
     Route: 048
     Dates: start: 20091001, end: 20101020
  2. AMIODARONE HCL [Suspect]
     Indication: ATRIAL FIBRILLATION
     Route: 048
     Dates: start: 20091001, end: 20101015
  3. AMIODARONE HCL [Suspect]
     Route: 048
     Dates: start: 20101018, end: 20101020
  4. COUMADIN [Concomitant]
     Indication: ATRIAL FIBRILLATION
     Route: 048
     Dates: start: 20101020
  5. AMLODIPINE [Concomitant]
     Indication: HYPERTENSION
     Route: 048
     Dates: start: 20100928, end: 20101020
  6. ZOFENOPRIL CALCIUM [Concomitant]
     Indication: HYPERTENSION
     Route: 048
     Dates: start: 20101020
  7. SOLOSA [Concomitant]
     Route: 048
     Dates: start: 20101020

REACTIONS (3)
  - ASTHENIA [None]
  - BRADYCARDIA [None]
  - HYPONATRAEMIA [None]
